FAERS Safety Report 8760579 (Version 1)
Quarter: 2012Q4

REPORT INFORMATION
  Report Type: Spontaneous
  Country: US (occurrence: None)
  Receive Date: 20120829
  Receipt Date: 20120829
  Transmission Date: 20130627
  Serious: Yes (Hospitalization)
  Sender: FDA-Public Use
  Company Number: None

PATIENT
  Sex: Female
  Weight: 93.5 kg

DRUGS (1)
  1. CETUXIMAB [Suspect]

REACTIONS (4)
  - Mucosal inflammation [None]
  - Pyrexia [None]
  - Malaise [None]
  - Blood pressure decreased [None]
